FAERS Safety Report 21860655 (Version 2)
Quarter: 2023Q1

REPORT INFORMATION
  Report Type: Spontaneous
  Country: FR (occurrence: FR)
  Receive Date: 20230113
  Receipt Date: 20230119
  Transmission Date: 20230418
  Serious: Yes (Death, Life-Threatening)
  Sender: FDA-Public Use
  Company Number: None

PATIENT
  Age: 78 Year
  Sex: Male
  Weight: 71 kg

DRUGS (17)
  1. TICAGRELOR [Interacting]
     Active Substance: TICAGRELOR
     Indication: Acute coronary syndrome
     Dosage: 180 MILLIGRAM, QD
     Route: 048
     Dates: start: 20221025, end: 20221031
  2. ETOPOSIDE [Interacting]
     Active Substance: ETOPOSIDE
     Indication: B-cell lymphoma
     Dosage: 50 MILLIGRAM, 1 TOTAL
     Route: 042
     Dates: start: 20221002, end: 20221002
  3. METHYLPREDNISOLONE [Interacting]
     Active Substance: METHYLPREDNISOLONE
     Indication: Product used for unknown indication
     Dosage: 100 MILLIGRAM, QD
     Route: 048
     Dates: start: 20221002, end: 20221007
  4. CYCLOPHOSPHAMIDE [Interacting]
     Active Substance: CYCLOPHOSPHAMIDE
     Indication: B-cell lymphoma
     Dosage: 1350 MILLIGRAM, 1 TOTAL
     Route: 042
     Dates: start: 20221002, end: 20221002
  5. VINCRISTINE SULFATE [Interacting]
     Active Substance: VINCRISTINE SULFATE
     Indication: B-cell lymphoma
     Dosage: 2 MILLIGRAM, 1 TOTAL
     Route: 042
     Dates: start: 20221002, end: 20221002
  6. RITUXIMAB [Interacting]
     Active Substance: RITUXIMAB
     Indication: B-cell lymphoma
     Dosage: 1400 MILLIGRAM, 1 TOTAL
     Route: 058
     Dates: start: 20221002, end: 20221002
  7. ETOPOSIDE [Interacting]
     Active Substance: ETOPOSIDE
     Indication: B-cell lymphoma
     Dosage: 100 MILLIGRAM, QD
     Route: 048
     Dates: start: 20221002, end: 20221003
  8. LOVENOX [Interacting]
     Active Substance: ENOXAPARIN SODIUM
     Indication: Thrombosis prophylaxis
     Dosage: 1 DF, QD, SOL FOR INJECTION IN PRE-FILLED SYRINGE
     Route: 058
     Dates: start: 20221018, end: 20221031
  9. LOVENOX [Interacting]
     Active Substance: ENOXAPARIN SODIUM
     Dosage: 0.4 MILLILITER
     Route: 058
     Dates: start: 20221018, end: 20221031
  10. KARDEGIC [Interacting]
     Active Substance: ASPIRIN DL-LYSINE
     Indication: Cardiovascular event prophylaxis
     Dosage: 1 DOSAGE FORM, QD
     Route: 048
  11. ACETAMINOPHEN [Concomitant]
     Active Substance: ACETAMINOPHEN
     Dosage: 1 GRAM, QD
     Route: 048
     Dates: end: 20221031
  12. LEUCOVORIN CALCIUM [Concomitant]
     Active Substance: LEUCOVORIN CALCIUM
     Dosage: 1 DOSAGE FORM, QW
     Route: 048
     Dates: end: 20221031
  13. VALACYCLOVIR HYDROCHLORIDE [Concomitant]
     Active Substance: VALACYCLOVIR HYDROCHLORIDE
     Dosage: 500 MILLIGRAM, QD
     Route: 048
     Dates: end: 20221031
  14. POLYETHYLENE GLYCOLS [Concomitant]
     Active Substance: POLYETHYLENE GLYCOLS
     Dosage: 2 DOSAGE FORM, QD
     Route: 048
  15. CEFOTAXIME [Concomitant]
     Active Substance: CEFOTAXIME SODIUM
     Dosage: 6 GRAM, QD
     Route: 042
     Dates: start: 20221017, end: 20221031
  16. ATORVASTATIN [Concomitant]
     Active Substance: ATORVASTATIN
     Dosage: 40 MILLIGRAM, QD
     Route: 048
     Dates: end: 20221031
  17. BACTRIM [Concomitant]
     Active Substance: SULFAMETHOXAZOLE\TRIMETHOPRIM
     Dosage: 3 DOSAGE FORM, QW
     Route: 048
     Dates: end: 20221031

REACTIONS (3)
  - Gastrointestinal haemorrhage [Fatal]
  - Drug interaction [Recovering/Resolving]
  - Sepsis [Recovering/Resolving]

NARRATIVE: CASE EVENT DATE: 20221027
